FAERS Safety Report 20398677 (Version 2)
Quarter: 2022Q1

REPORT INFORMATION
  Report Type: Spontaneous
  Country: US (occurrence: US)
  Receive Date: 20220131
  Receipt Date: 20220201
  Transmission Date: 20220423
  Serious: No
  Sender: FDA-Public Use
  Company Number: US-ABBVIE-21K-163-3844331-00

PATIENT
  Age: 46 Year
  Sex: Female

DRUGS (1)
  1. HUMIRA [Suspect]
     Active Substance: ADALIMUMAB
     Indication: Psoriasis
     Route: 058

REACTIONS (6)
  - SARS-CoV-2 test positive [Unknown]
  - Drug ineffective [Unknown]
  - Psoriasis [Unknown]
  - Mobility decreased [Unknown]
  - Stress [Unknown]
  - Depression [Unknown]

NARRATIVE: CASE EVENT DATE: 20210301
